FAERS Safety Report 9548277 (Version 1)
Quarter: 2013Q3

REPORT INFORMATION
  Report Type: Spontaneous
  Country: US (occurrence: None)
  Receive Date: 20130923
  Receipt Date: 20130923
  Transmission Date: 20140515
  Serious: Yes (Other)
  Sender: FDA-Public Use
  Company Number: None

PATIENT
  Age: 64 Year
  Sex: Male
  Weight: 70.31 kg

DRUGS (9)
  1. BYETTA [Suspect]
     Indication: DIABETES MELLITUS
     Dosage: TWICE DAILY INJECTION
     Dates: start: 20081118, end: 20090106
  2. LISINOPRIL [Concomitant]
  3. JANUVIA [Concomitant]
  4. ACTOS [Concomitant]
  5. VYTORIN [Concomitant]
  6. PLAVIX [Concomitant]
  7. BENICAR [Concomitant]
  8. BLOOD GLUCOSE METER [Concomitant]
  9. BABY ASPIRIN [Concomitant]

REACTIONS (7)
  - Vomiting [None]
  - Diarrhoea [None]
  - Nausea [None]
  - Decreased appetite [None]
  - Pain [None]
  - Weight decreased [None]
  - Hypotension [None]
